FAERS Safety Report 6571705-1 (Version None)
Quarter: 2010Q1

REPORT INFORMATION
  Report Type: 
  Country: None (occurrence: None)
  Receive Date: 20100205
  Receipt Date: 20100129
  Transmission Date: 20100710
  Serious: Yes (Death, Other)
  Sender: FDA-Public Use
  Company Number: NZ-JNJFOC-20091106852

PATIENT
  Sex: Male

DRUGS (3)
  1. RISPERDAL CONSTA [Suspect]
     Indication: SCHIZOPHRENIA, PARANOID TYPE
     Route: 030
  2. DIAZEPAM [Suspect]
     Indication: SCHIZOPHRENIA, PARANOID TYPE
     Route: 065
  3. RISPERDAL [Concomitant]
     Indication: SCHIZOPHRENIA, PARANOID TYPE
     Route: 065

REACTIONS (4)
  - DELUSION [None]
  - DRUG INEFFECTIVE [None]
  - OVERDOSE [None]
  - SUDDEN DEATH [None]
